FAERS Safety Report 22209084 (Version 1)
Quarter: 2023Q2

REPORT INFORMATION
  Report Type: Spontaneous
  Country: CA (occurrence: None)
  Receive Date: 20230413
  Receipt Date: 20230413
  Transmission Date: 20230722
  Serious: Yes (Death)
  Sender: FDA-Public Use
  Company Number: CA-ROCHE-3330652

PATIENT
  Age: 86 Year
  Sex: Male
  Weight: 105 kg

DRUGS (2)
  1. PIRFENIDONE [Suspect]
     Active Substance: PIRFENIDONE
     Indication: Idiopathic pulmonary fibrosis
     Route: 048
  2. ESBRIET [Concomitant]
     Active Substance: PIRFENIDONE
     Indication: Dyspnoea

REACTIONS (2)
  - Death [Fatal]
  - Gait disturbance [Fatal]
